FAERS Safety Report 10411714 (Version 1)
Quarter: 2014Q3

REPORT INFORMATION
  Report Type: Spontaneous
  Country: US (occurrence: None)
  Receive Date: 20140826
  Receipt Date: 20140826
  Transmission Date: 20150326
  Serious: No
  Sender: FDA-Public Use
  Company Number: None

PATIENT
  Age: 74 Year
  Sex: Female

DRUGS (1)
  1. XELJANZ [Suspect]
     Active Substance: TOFACITINIB CITRATE
     Indication: RHEUMATOID ARTHRITIS
     Dosage: 1 TABLET, BID, ORAL
     Route: 048
     Dates: start: 20140728, end: 20140813

REACTIONS (3)
  - Inner ear disorder [None]
  - Nervousness [None]
  - Tremor [None]

NARRATIVE: CASE EVENT DATE: 20140811
